FAERS Safety Report 10023778 (Version 3)
Quarter: 2014Q1

REPORT INFORMATION
  Report Type: Spontaneous
  Country: US (occurrence: None)
  Receive Date: 20140114
  Receipt Date: 20140205
  Transmission Date: 20141002
  Serious: Yes (Other)
  Sender: FDA-Public Use
  Company Number: ADR-2013-02315

PATIENT
  Age: 68 Year
  Sex: Male

DRUGS (11)
  1. LIORESAL [Suspect]
     Indication: MUSCLE SPASTICITY
     Dates: start: 20101118
  2. BUPIVACAINE [Suspect]
     Indication: MUSCLE SPASTICITY
     Dosage: 0.50001 MG/DAY
  3. DILTIAZEM [Concomitant]
  4. FUROSIMIDE [Concomitant]
  5. GABAPENTIN [Concomitant]
  6. KLOR-CON [Concomitant]
  7. METFORMIN [Concomitant]
  8. METROPOLOL [Concomitant]
  9. PRADAXA [Concomitant]
  10. QUINAPRIL [Concomitant]
  11. SIMVASTATIN [Concomitant]

REACTIONS (6)
  - Pruritus [None]
  - Neuropathy peripheral [None]
  - Muscle spasms [None]
  - Musculoskeletal stiffness [None]
  - Device malfunction [None]
  - Drug effect decreased [None]
